FAERS Safety Report 8582404-9 (Version None)
Quarter: 2012Q3

REPORT INFORMATION
  Report Type: 
  Country: None (occurrence: None)
  Receive Date: 20120809
  Receipt Date: 20120806
  Transmission Date: 20120928
  Serious: Yes (Hospitalization)
  Sender: FDA-Public Use
  Company Number: US-GLAXOSMITHKLINE-A0988795A

PATIENT
  Age: 57 Year
  Sex: Female

DRUGS (4)
  1. VENTOLIN [Suspect]
     Dosage: 90MCG UNKNOWN
     Route: 065
     Dates: start: 20090112
  2. COREG [Suspect]
     Dosage: 2.5MG UNKNOWN
     Route: 065
  3. FLUTICASONE PROPIONATE [Suspect]
     Route: 065
     Dates: start: 20090112
  4. BECONASE AQ [Suspect]
     Dosage: 42MCG UNKNOWN
     Route: 065
     Dates: start: 20090112

REACTIONS (2)
  - CARDIAC DISORDER [None]
  - ASTHMA [None]
